FAERS Safety Report 5951336-4 (Version None)
Quarter: 2008Q4

REPORT INFORMATION
  Report Type: 
  Country: None (occurrence: None)
  Receive Date: 20081113
  Receipt Date: 20081105
  Transmission Date: 20090506
  Serious: Yes (Hospitalization)
  Sender: FDA-Public Use
  Company Number: CH-SANOFI-SYNTHELABO-F01200801689

PATIENT
  Sex: Male

DRUGS (6)
  1. IRINOTECAN HYDROCHLORIDE [Suspect]
     Route: 065
  2. FLUOROURACIL [Suspect]
     Route: 065
  3. FOLINIC ACID [Suspect]
     Route: 065
  4. CETUXIMAB [Suspect]
     Route: 065
  5. BEVACIZUMAB [Suspect]
     Route: 065
  6. OXALIPLATIN [Suspect]
     Indication: COLORECTAL CANCER
     Route: 065

REACTIONS (2)
  - EYELID FUNCTION DISORDER [None]
  - KERATOCONJUNCTIVITIS SICCA [None]
